FAERS Safety Report 17033827 (Version 1)
Quarter: 2019Q4

REPORT INFORMATION
  Report Type: Spontaneous
  Country: US (occurrence: US)
  Receive Date: 20191114
  Receipt Date: 20191114
  Transmission Date: 20200122
  Serious: No
  Sender: FDA-Public Use
  Company Number: US-RIGEL PHARMACEUTICALS, INC.-2019FOS000354

PATIENT
  Sex: Male

DRUGS (1)
  1. TAVALISSE [Suspect]
     Active Substance: FOSTAMATINIB
     Dosage: 150 MG, QD
     Route: 048
     Dates: start: 20190126

REACTIONS (4)
  - Nocturia [Unknown]
  - Fatigue [Unknown]
  - Prescribed underdose [Unknown]
  - Sleep disorder [Unknown]

NARRATIVE: CASE EVENT DATE: 2019
